FAERS Safety Report 12989929 (Version 1)
Quarter: 2016Q4

REPORT INFORMATION
  Report Type: Spontaneous
  Country: US (occurrence: US)
  Receive Date: 20161130
  Receipt Date: 20161130
  Transmission Date: 20170207
  Serious: No
  Sender: FDA-Public Use
  Company Number: None

PATIENT
  Age: 59 Year
  Sex: Female
  Weight: 50.85 kg

DRUGS (2)
  1. CAPECITABINE MYLAN [Suspect]
     Active Substance: CAPECITABINE
     Dates: start: 20151211
  2. TYKERB [Suspect]
     Active Substance: LAPATINIB DITOSYLATE
     Indication: NEOPLASM MALIGNANT
     Route: 048
     Dates: start: 20151211

REACTIONS (2)
  - Dyspnoea [None]
  - Hypoaesthesia [None]
